FAERS Safety Report 5096496-5 (Version None)
Quarter: 2006Q3

REPORT INFORMATION
  Report Type: 
  Country: None (occurrence: None)
  Receive Date: 20060830
  Receipt Date: 20060821
  Transmission Date: 20061208
  Serious: Yes (Other)
  Sender: FDA-Public Use
  Company Number: 2006-02179

PATIENT
  Age: 52 Year
  Sex: Male
  Weight: 102 kg

DRUGS (1)
  1. VELCADE [Suspect]
     Indication: MULTIPLE MYELOMA
     Dosage: 2.60 MG,  INTRAVENOUS
     Route: 042
     Dates: start: 20060306, end: 20060524

REACTIONS (1)
  - BLINDNESS [None]
